FAERS Safety Report 11829174 (Version 3)
Quarter: 2016Q2

REPORT INFORMATION
  Report Type: Spontaneous
  Country: JP (occurrence: JP)
  Receive Date: 20151211
  Receipt Date: 20160421
  Transmission Date: 20160815
  Serious: Yes (Hospitalization, Other)
  Sender: FDA-Public Use
  Company Number: JP-PFIZER INC-2015437460

PATIENT
  Age: 56 Year
  Sex: Male
  Weight: 55 kg

DRUGS (11)
  1. 5-FU [Concomitant]
     Active Substance: FLUOROURACIL
     Dosage: 647.6 MG/BODY (400 MG/M2), CYCLIC
     Route: 040
     Dates: start: 201212
  2. LEVOFOLINATE CALCIUM [Concomitant]
     Active Substance: LEVOLEUCOVORIN CALCIUM
     Dosage: 323.8 MG/BODY (200 MG/M2), CYCLIC
     Dates: start: 201212
  3. 5-FU [Concomitant]
     Active Substance: FLUOROURACIL
     Dosage: 3885.6 MG/BODY (2400 MG/M2), CYCLIC (D1-2)
     Route: 041
     Dates: start: 201212
  4. 5-FU [Concomitant]
     Active Substance: FLUOROURACIL
     Dosage: UNK, CYCLIC
     Route: 040
     Dates: start: 20120523, end: 2012
  5. CAMPTO [Suspect]
     Active Substance: IRINOTECAN
     Indication: COLON CANCER
     Dosage: 242.9 MG/BODY (150 MG/M2), CYCLIC ONCE A DAY
     Route: 041
     Dates: start: 201212
  6. ELPLAT [Suspect]
     Active Substance: OXALIPLATIN
     Indication: COLON CANCER
     Dosage: UNK, CYCLIC (1X/DAY)
     Route: 041
     Dates: start: 20120523, end: 2012
  7. PREDNISOLONE SODIUM SUCCINATE [Concomitant]
     Active Substance: PREDNISOLONE SODIUM SUCCINATE
     Dosage: UNK
     Dates: start: 20130303
  8. PREDNISOLONE. [Concomitant]
     Active Substance: PREDNISOLONE
     Dosage: UNK
     Dates: start: 20130303, end: 20130303
  9. CAMPTO [Suspect]
     Active Substance: IRINOTECAN
     Dosage: 161.9 MG (150 MG/M2), CYCLIC ONCE A DAY
     Route: 041
  10. LEVOFOLINATE CALCIUM [Concomitant]
     Active Substance: LEVOLEUCOVORIN CALCIUM
     Indication: COLON CANCER
     Dosage: UNK, CYCLIC
     Dates: start: 20120523, end: 2012
  11. 5-FU [Concomitant]
     Active Substance: FLUOROURACIL
     Indication: COLON CANCER
     Dosage: UNK, CYCLIC
     Route: 041
     Dates: start: 20120523, end: 2012

REACTIONS (1)
  - Interstitial lung disease [Recovering/Resolving]
